FAERS Safety Report 5713141-3 (Version None)
Quarter: 2008Q2

REPORT INFORMATION
  Report Type: 
  Country: None (occurrence: None)
  Receive Date: 20080422
  Receipt Date: 20080414
  Transmission Date: 20081010
  Serious: Yes (Hospitalization)
  Sender: FDA-Public Use
  Company Number: KR-ROCHE-555262

PATIENT
  Sex: Male
  Weight: 62 kg

DRUGS (20)
  1. CAPECITABINE [Suspect]
     Indication: GASTRIC CANCER
     Dosage: DOSING FREQUENCY REPORTED AS D1-14Q3W. ROUTE REPORTED AS BID PO.
     Route: 048
     Dates: start: 20080312, end: 20080403
  2. BLINDED BEVACIZUMAB [Suspect]
     Indication: GASTRIC CANCER
     Route: 042
     Dates: start: 20080312, end: 20080403
  3. CISPLATIN [Suspect]
     Indication: GASTRIC CANCER
     Dosage: DOSING FREQUENCY REPORTED AS D1Q3W. DOSAGE FORM REPORTED AS INFUSION.
     Route: 042
     Dates: start: 20080312, end: 20080403
  4. MYPOL [Concomitant]
     Dates: start: 20080311, end: 20080403
  5. MYPOL [Concomitant]
     Dates: start: 20080311, end: 20080403
  6. MYPOL [Concomitant]
     Dates: start: 20080311, end: 20080403
  7. OXYCONTIN [Concomitant]
     Route: 048
     Dates: start: 20080404
  8. LASIX [Concomitant]
     Route: 042
     Dates: start: 20080329, end: 20080329
  9. LASIX [Concomitant]
     Route: 042
     Dates: start: 20080406, end: 20080407
  10. METOCLOPRAMIDE HCL [Concomitant]
     Route: 042
     Dates: start: 20080330, end: 20080330
  11. METOCLOPRAMIDE HCL [Concomitant]
     Route: 042
     Dates: start: 20080403, end: 20080403
  12. METOCLOPRAMIDE HCL [Concomitant]
     Route: 042
     Dates: start: 20080405, end: 20080405
  13. METOCLOPRAMIDE HCL [Concomitant]
     Route: 042
     Dates: start: 20080407, end: 20080407
  14. TRIDOL [Concomitant]
     Route: 042
     Dates: start: 20080402, end: 20080402
  15. TRIDOL [Concomitant]
     Route: 042
     Dates: start: 20080409, end: 20080409
  16. 1 CONCOMITANT DRUG [Concomitant]
     Dosage: REPORTED AS FANTANYL PATCH
     Route: 062
     Dates: start: 20080410
  17. ALBUMINAR-20 [Concomitant]
     Dates: start: 20080330, end: 20080330
  18. ALBUMINAR-20 [Concomitant]
     Dates: start: 20080401, end: 20080401
  19. ALBUMINAR-20 [Concomitant]
     Dates: start: 20080403, end: 20080403
  20. METOCLOPRAMIDE HCL [Concomitant]
     Route: 048
     Dates: start: 20080331

REACTIONS (4)
  - ACUTE PRERENAL FAILURE [None]
  - BLOOD CREATININE INCREASED [None]
  - BLOOD UREA INCREASED [None]
  - NO THERAPEUTIC RESPONSE [None]
